FAERS Safety Report 6409466-9 (Version None)
Quarter: 2009Q4

REPORT INFORMATION
  Report Type: 
  Country: None (occurrence: None)
  Receive Date: 20091019
  Receipt Date: 20091007
  Transmission Date: 20100525
  Serious: Yes (Hospitalization)
  Sender: FDA-Public Use
  Company Number: 231650J09USA

PATIENT
  Age: 58 Year
  Weight: 63 kg

DRUGS (4)
  1. REBIF [Suspect]
     Indication: MULTIPLE SCLEROSIS
     Dosage: 44 MCG, 3 IN 1 WEEKS, SUBCUTANEOUS
     Route: 058
     Dates: start: 20070222
  2. PREVACID [Concomitant]
  3. UNSPECIFIED MEDICATION (ALL OTHER THERAPEUTIC PRODUCTS) [Concomitant]
  4. REQUIP [Concomitant]

REACTIONS (3)
  - CORONARY ARTERY OCCLUSION [None]
  - HIGH DENSITY LIPOPROTEIN DECREASED [None]
  - MYOCARDIAL INFARCTION [None]
